FAERS Safety Report 7328792-2 (Version None)
Quarter: 2011Q1

REPORT INFORMATION
  Report Type: 
  Country: None (occurrence: None)
  Receive Date: 20110303
  Receipt Date: 20110303
  Transmission Date: 20110831
  Serious: Yes (Hospitalization)
  Sender: FDA-Public Use
  Company Number: PHHO2007IT14260

PATIENT
  Sex: Female
  Weight: 63 kg

DRUGS (2)
  1. PLACEBO [Suspect]
     Indication: CARCINOID TUMOUR
     Dosage: PLACEBO
     Route: 048
     Dates: start: 20070528
  2. SANDOSTATIN LAR [Suspect]
     Indication: CARCINOID TUMOUR
     Dosage: 30MG, DAILY

REACTIONS (7)
  - VISCERAL OEDEMA [None]
  - BACTERAEMIA [None]
  - STAPHYLOCOCCAL INFECTION [None]
  - NEOPLASM MALIGNANT [None]
  - PYREXIA [None]
  - PARACENTESIS [None]
  - TUMOUR ASSOCIATED FEVER [None]
